FAERS Safety Report 7503659-5 (Version None)
Quarter: 2011Q2

REPORT INFORMATION
  Report Type: 
  Country: None (occurrence: None)
  Receive Date: 20110525
  Receipt Date: 20110415
  Transmission Date: 20111010
  Serious: Yes (Disabling, Other)
  Sender: FDA-Public Use
  Company Number: US-BAYER-200836015NA

PATIENT
  Age: 56 Year
  Sex: Male
  Weight: 115.65 kg

DRUGS (21)
  1. MAGNEVIST [Suspect]
     Indication: NUCLEAR MAGNETIC RESONANCE IMAGING
     Dosage: 20 ML, ONCE
     Dates: start: 20040420, end: 20040420
  2. MAGNEVIST [Suspect]
     Indication: ANGIOGRAM
  3. MULTIHANCE [Suspect]
     Indication: NUCLEAR MAGNETIC RESONANCE IMAGING
     Dates: start: 20070822, end: 20070822
  4. AGGRENOX [Concomitant]
  5. SINGULAIR [Concomitant]
  6. ADVAIR DISKUS 100/50 [Concomitant]
  7. PLAVIX [Concomitant]
  8. GADOLINIUM IN UNSPECIFIED DRUG [Suspect]
     Indication: NUCLEAR MAGNETIC RESONANCE IMAGING BRAIN
     Dosage: UNK
     Dates: start: 20031105, end: 20031105
  9. SYNTHROID [Concomitant]
  10. AMBIEN [Concomitant]
  11. MAGNEVIST [Suspect]
     Dates: start: 20060510, end: 20060510
  12. CYCLOBENZAPRINE [Concomitant]
  13. OMNISCAN [Suspect]
     Indication: NUCLEAR MAGNETIC RESONANCE IMAGING BRAIN
     Dates: start: 20031111, end: 20031111
  14. AMARYL [Concomitant]
  15. DIOVAN [Concomitant]
  16. ALPRAZOLAM [Concomitant]
  17. HYDROCHLOROTHIAZIDE [Concomitant]
  18. CELEBREX [Concomitant]
  19. ZOCOR [Concomitant]
  20. AVANDIA [Concomitant]
  21. PROZAC [Concomitant]

REACTIONS (11)
  - SCAR [None]
  - SKIN TIGHTNESS [None]
  - MUSCULOSKELETAL STIFFNESS [None]
  - ASTHENIA [None]
  - SENSORY LOSS [None]
  - SKIN DISCOLOURATION [None]
  - PRURITUS GENERALISED [None]
  - SKIN FIBROSIS [None]
  - NEPHROGENIC SYSTEMIC FIBROSIS [None]
  - PAIN [None]
  - GAIT DISTURBANCE [None]
